FAERS Safety Report 4307495-2 (Version None)
Quarter: 2004Q1

REPORT INFORMATION
  Report Type: 
  Country: None (occurrence: None)
  Receive Date: 20040226
  Receipt Date: 20040216
  Transmission Date: 20041129
  Serious: No
  Sender: FDA-Public Use
  Company Number: 04P-062-0250743-00

PATIENT
  Age: 63 Year
  Sex: Male
  Weight: 77 kg

DRUGS (9)
  1. BIAXIN [Suspect]
     Indication: BRONCHOPNEUMONIA
     Dosage: PER ORAL
     Route: 048
     Dates: start: 20031212, end: 20031218
  2. CEFTRIAXONE SODIUM [Concomitant]
  3. PREDNISOLONE [Concomitant]
  4. CALCIUM WITH VITAMIN D [Concomitant]
  5. ALLOPURINOL [Concomitant]
  6. PANTOPRAZOLE [Concomitant]
  7. ALENDRONATE SODIUM [Concomitant]
  8. METHOTREXATE [Concomitant]
  9. HUMIRA [Concomitant]

REACTIONS (7)
  - ALPHA HAEMOLYTIC STREPTOCOCCAL INFECTION [None]
  - CANDIDIASIS [None]
  - CLOSTRIDIUM COLITIS [None]
  - CULTURE STOOL POSITIVE [None]
  - LEUKOCYTOSIS [None]
  - PSEUDOMONAS INFECTION [None]
  - SPUTUM CULTURE POSITIVE [None]
